FAERS Safety Report 15703166 (Version 1)
Quarter: 2018Q4

REPORT INFORMATION
  Report Type: Spontaneous
  Country: US (occurrence: US)
  Receive Date: 20181208
  Receipt Date: 20181208
  Transmission Date: 20190205
  Serious: Yes (Disabling)
  Sender: FDA-Public Use
  Company Number: None

PATIENT
  Age: 28 Year
  Sex: Female
  Weight: 49.95 kg

DRUGS (1)
  1. CIPROFLOXACIN. [Suspect]
     Active Substance: CIPROFLOXACIN
     Indication: URINARY TRACT INFECTION
     Dates: start: 20181020, end: 20181130

REACTIONS (11)
  - Muscular weakness [None]
  - Thinking abnormal [None]
  - Nausea [None]
  - Weight decreased [None]
  - Pain [None]
  - Fatigue [None]
  - Decreased appetite [None]
  - Feeling abnormal [None]
  - Memory impairment [None]
  - Headache [None]
  - Abdominal pain [None]

NARRATIVE: CASE EVENT DATE: 20181207
